FAERS Safety Report 7024311-9 (Version None)
Quarter: 2010Q4

REPORT INFORMATION
  Report Type: 
  Country: None (occurrence: None)
  Receive Date: 20101001
  Receipt Date: 20100927
  Transmission Date: 20110411
  Serious: Yes (Death)
  Sender: FDA-Public Use
  Company Number: TH-PFIZER INC-2010122691

PATIENT
  Age: 22 Year
  Sex: Female

DRUGS (7)
  1. ZITHROMAX [Suspect]
     Indication: PNEUMONIA
     Dosage: 500 MG, 1X/DAY
     Route: 048
     Dates: start: 20100922, end: 20100925
  2. ZITHROMAX [Suspect]
     Dosage: 500 MG, UNK
     Route: 042
     Dates: start: 20100925, end: 20100925
  3. OMEPRAZOLE [Concomitant]
     Dosage: UNK
     Dates: start: 20100922
  4. ALUM MILK [Concomitant]
     Dosage: UNK
     Dates: start: 20100922
  5. AUGMENTIN '125' [Concomitant]
     Indication: PNEUMONIA
     Dosage: UNK
     Route: 042
     Dates: start: 20100925
  6. SULPERAZON [Concomitant]
     Indication: PNEUMONIA
     Dosage: UNK
     Route: 042
     Dates: start: 20100925
  7. CEFTRIAXONE [Concomitant]
     Indication: PNEUMONIA
     Dosage: UNK
     Route: 042
     Dates: start: 20100925

REACTIONS (2)
  - INJECTION SITE ERYTHEMA [None]
  - VIRAL MYOCARDITIS [None]
